FAERS Safety Report 12834280 (Version 1)
Quarter: 2016Q4

REPORT INFORMATION
  Report Type: Spontaneous
  Country: SE (occurrence: SE)
  Receive Date: 20161010
  Receipt Date: 20161010
  Transmission Date: 20170207
  Serious: Yes (Hospitalization)
  Sender: FDA-Public Use
  Company Number: PHHY2016SE136030

PATIENT
  Age: 55 Year
  Sex: Female

DRUGS (2)
  1. GEAVIR [Suspect]
     Active Substance: ACYCLOVIR
     Indication: HERPES SIMPLEX ENCEPHALITIS
     Dosage: 1140 MG EVERY 8. HOUR
     Route: 042
     Dates: start: 20160907, end: 20160909
  2. IPREN [Suspect]
     Active Substance: IBUPROFEN
     Indication: BACK PAIN
     Route: 048
     Dates: end: 20160909

REACTIONS (8)
  - Disorganised speech [Recovered/Resolved]
  - Renal impairment [Recovered/Resolved]
  - Lethargy [Recovered/Resolved]
  - Hallucination [Recovered/Resolved]
  - Confusional state [Recovered/Resolved]
  - Neurological decompensation [Recovered/Resolved]
  - Aphasia [Recovered/Resolved]
  - Incoherent [None]

NARRATIVE: CASE EVENT DATE: 20160909
